FAERS Safety Report 8193058-8 (Version None)
Quarter: 2012Q1

REPORT INFORMATION
  Report Type: 
  Country: None (occurrence: None)
  Receive Date: 20120221
  Receipt Date: 20111025
  Transmission Date: 20120608
  Serious: No
  Sender: FDA-Public Use
  Company Number: 1000024950

PATIENT
  Sex: Male

DRUGS (1)
  1. VIIBRYD [Suspect]
     Dosage: 20 MG (20 MG, 1 IN 1 D) ORAL;
     Route: 048

REACTIONS (1)
  - WEIGHT INCREASED [None]
